FAERS Safety Report 7367592-4 (Version None)
Quarter: 2011Q1

REPORT INFORMATION
  Report Type: 
  Country: None (occurrence: None)
  Receive Date: 20110314
  Receipt Date: 20110225
  Transmission Date: 20110831
  Serious: Yes (Other)
  Sender: FDA-Public Use
  Company Number: DSA_45152_2011

PATIENT
  Sex: Female

DRUGS (1)
  1. ZOVIRAX / 00587301 / ZOVIRAX - ACYCLOVIR) (NOT SPECIFIED) [Suspect]
     Indication: EYE INFECTION VIRAL
     Dosage: 5 APPLICATIONS INTRAOCULAR
     Route: 031
     Dates: start: 20101104, end: 20101105

REACTIONS (6)
  - DRUG DISPENSING ERROR [None]
  - CONDITION AGGRAVATED [None]
  - CORNEAL ABRASION [None]
  - VISION BLURRED [None]
  - INJURY CORNEAL [None]
  - EYE PAIN [None]
